FAERS Safety Report 8890242 (Version 5)
Quarter: 2014Q2

REPORT INFORMATION
  Report Type: Spontaneous
  Country: BR (occurrence: BR)
  Receive Date: 20121107
  Receipt Date: 20140506
  Transmission Date: 20141212
  Serious: Yes (Other)
  Sender: FDA-Public Use
  Company Number: BR-AMGEN-BRASP2012070546

PATIENT
  Age: 65 Year
  Sex: Female
  Weight: 62 kg

DRUGS (20)
  1. ENBREL [Suspect]
     Indication: PSORIASIS
     Dosage: 50 MG, ONCE WEEKLY
     Route: 058
     Dates: start: 2009
  2. ENBREL [Suspect]
     Dosage: 50 MG, QWK
     Route: 058
     Dates: start: 2012
  3. ENBREL [Suspect]
     Dosage: 50 MG, QWK
     Route: 058
     Dates: start: 201205
  4. CITALOR [Concomitant]
     Dosage: 1 TABLET OF 10 MG, 1X/DAY
     Route: 048
  5. GLIFAGE [Concomitant]
     Dosage: 2 TABLETS OF 500 MG, DAILY (2X/DAY)
     Route: 048
  6. GLIFAGE [Concomitant]
     Dosage: 1000 MG, 2X/DAY
     Route: 048
  7. LOSARTAN [Concomitant]
     Dosage: 100 MG, 2X/DAY (50MG, 2-0-2)
     Route: 048
  8. CORDILOX [Concomitant]
     Dosage: 1 TABLET OF 5 MG, DAILY (1X/DAY)
     Route: 048
  9. OMEPRAZOL                          /00661201/ [Concomitant]
     Dosage: 1 TABLET OF 20 MG, DAILY (1X/DAY)
     Route: 048
  10. METFORMIN [Concomitant]
     Dosage: 850 UNK, 2X/DAY
  11. AAS [Concomitant]
     Dosage: 200 MG, QD (100MG 0-2-0)
  12. AAS [Concomitant]
     Dosage: 200 MG, 1X/DAY
  13. AMLODIPINE [Concomitant]
     Dosage: 5 MG, 1X/DAY
  14. AMLODIPINE [Concomitant]
     Dosage: 5 MG, 1X/DAY
  15. HYDROCHLOROTHIAZIDE [Concomitant]
     Dosage: 1 ONCE DAILY (1-0-0)
  16. PROPANOL [Concomitant]
     Dosage: 80 UNK, (80 UNK, 2X/DAY  )
  17. GLIMEPIRIDE [Concomitant]
     Dosage: UNK  94 UNK, 1X/DAY   )
  18. GLIMEPIRIDE [Concomitant]
     Dosage: 4 UNK, 1X/DAY
  19. OMEPRAZOL                          /00661201/ [Concomitant]
     Dosage: 20 MG, 1X/DAY
     Route: 048
  20. PROPRANOLOL [Concomitant]
     Dosage: 80 UNK, 2X/DAY

REACTIONS (5)
  - Renal failure [Not Recovered/Not Resolved]
  - Renal disorder [Unknown]
  - Cardiac disorder [Unknown]
  - Parotitis [Recovering/Resolving]
  - Nasopharyngitis [Recovered/Resolved]
